FAERS Safety Report 11271973 (Version 1)
Quarter: 2015Q3

REPORT INFORMATION
  Report Type: Spontaneous
  Country: US (occurrence: None)
  Receive Date: 20150713
  Receipt Date: 20150713
  Transmission Date: 20151125
  Serious: Yes (Other)
  Sender: FDA-Public Use
  Company Number: None

PATIENT
  Age: 50 Year
  Sex: Female

DRUGS (1)
  1. SUTENT [Suspect]
     Active Substance: SUNITINIB MALATE
     Indication: NEOPLASM MALIGNANT
     Route: 048
     Dates: start: 20150414

REACTIONS (6)
  - Hypertension [None]
  - Constipation [None]
  - Cognitive disorder [None]
  - Muscular weakness [None]
  - Petechiae [None]
  - Fatigue [None]

NARRATIVE: CASE EVENT DATE: 20150414
